FAERS Safety Report 14568080 (Version 1)
Quarter: 2018Q1

REPORT INFORMATION
  Report Type: Report from Study
  Country: CN (occurrence: CN)
  Receive Date: 20180223
  Receipt Date: 20180223
  Transmission Date: 20180509
  Serious: Yes (Hospitalization)
  Sender: FDA-Public Use
  Company Number: CN-ROCHE-1363118

PATIENT
  Age: 35 Year
  Sex: Male
  Weight: 71 kg

DRUGS (15)
  1. LORATADINE. [Concomitant]
     Active Substance: LORATADINE
     Route: 065
     Dates: start: 20140106, end: 20140617
  2. CYCLOPHOSPHAMIDE. [Suspect]
     Active Substance: CYCLOPHOSPHAMIDE
     Indication: DIFFUSE LARGE B-CELL LYMPHOMA
     Dosage: DAY 1 OF EACH 21 DAY CYCLE?MOST RECENT DOSE ON: 19/FEB/2014, LAST DOSE: 1360 MG
     Route: 042
     Dates: start: 20140107
  3. LEVOCARNITINE. [Concomitant]
     Active Substance: LEVOCARNITINE
     Route: 065
     Dates: start: 20140218, end: 20140224
  4. OMEPRAZOLE SODIUM [Concomitant]
     Active Substance: OMEPRAZOLE SODIUM
     Route: 065
     Dates: start: 20140219, end: 20140224
  5. ISOSORBIDE MONONITRATE. [Concomitant]
     Active Substance: ISOSORBIDE MONONITRATE
     Route: 065
     Dates: start: 20140221
  6. OBINUTUZUMAB. [Suspect]
     Active Substance: OBINUTUZUMAB
     Indication: DIFFUSE LARGE B-CELL LYMPHOMA
     Dosage: ON DAY 1 OF EACH 21-DAY CYCLE FOR 8 CYCLES. DURING CYCLE 1, OBINUTUZUMAB WAS ALSO INFUSED ON DAYS 8
     Route: 042
     Dates: start: 20140106
  7. PANTOPRAZOLE SODIUM. [Concomitant]
     Active Substance: PANTOPRAZOLE SODIUM
     Route: 065
     Dates: start: 20140131, end: 20140206
  8. VINCRISTINE [Suspect]
     Active Substance: VINCRISTINE
     Indication: DIFFUSE LARGE B-CELL LYMPHOMA
     Dosage: 1.4 TO 2.0 MG/M2 EVERY 3 WEEKS DAY 1 OF EACH 21 DAY CYCLE ?MOST RECENT DOSE ON: 19/FEB/2014, LAST DO
     Route: 040
     Dates: start: 20140107
  9. TROPISETRON HCL [Concomitant]
     Route: 065
     Dates: start: 20140220, end: 20140224
  10. PREDNISONE. [Suspect]
     Active Substance: PREDNISONE
     Indication: DIFFUSE LARGE B-CELL LYMPHOMA
     Dosage: DAY 1-5 OF EACH CYCLE (100 MG/DAY) EVERY 3 WEEKS, FOR 6 OR 8 CYCLES?MOST RECENT DOSE ON: 23/FEB/2014
     Route: 048
     Dates: start: 20140106
  11. DOXORUBICIN [Suspect]
     Active Substance: DOXORUBICIN
     Indication: DIFFUSE LARGE B-CELL LYMPHOMA
     Dosage: DAY 1 OF EACH 21 DAY CYCLE?MOST RECENT DOSE ON: 19/FEB/2014, LAST DOSE: 91 MG
     Route: 042
     Dates: start: 20140107
  12. CEFIXIME. [Concomitant]
     Active Substance: CEFIXIME
     Indication: PYREXIA
     Route: 065
     Dates: start: 20140302, end: 20140309
  13. ACETAMINOPHEN. [Concomitant]
     Active Substance: ACETAMINOPHEN
     Route: 065
     Dates: start: 20140106, end: 20140617
  14. AZITHROMYCIN ANHYDROUS. [Concomitant]
     Active Substance: AZITHROMYCIN ANHYDROUS
     Indication: PYREXIA
     Route: 065
     Dates: start: 20140302, end: 20140309
  15. PARACETAMOL [Concomitant]
     Active Substance: ACETAMINOPHEN
     Route: 065
     Dates: start: 20140106, end: 20140617

REACTIONS (1)
  - Measles [Recovered/Resolved]

NARRATIVE: CASE EVENT DATE: 20140307
